FAERS Safety Report 12522325 (Version 2)
Quarter: 2016Q3

REPORT INFORMATION
  Report Type: Spontaneous
  Country: US (occurrence: US)
  Receive Date: 20160701
  Receipt Date: 20160802
  Transmission Date: 20161109
  Serious: Yes (Death)
  Sender: FDA-Public Use
  Company Number: US-FRESENIUS MEDICAL CARE RENAL THERAPIES GROUP-FMC-1606-000296

PATIENT
  Age: 68 Year
  Sex: Male

DRUGS (12)
  1. HUMALOG [Concomitant]
     Active Substance: INSULIN LISPRO
  2. MARINOL [Concomitant]
     Active Substance: DRONABINOL
  3. FUROSEMIDE. [Concomitant]
     Active Substance: FUROSEMIDE
  4. LYRICA [Concomitant]
     Active Substance: PREGABALIN
  5. METOLAZONE. [Concomitant]
     Active Substance: METOLAZONE
  6. CALCITRIOL. [Concomitant]
     Active Substance: CALCITRIOL
  7. CARVEDILOL. [Concomitant]
     Active Substance: CARVEDILOL
  8. GENTAMYCIN [Concomitant]
     Active Substance: GENTAMICIN
  9. LEVOTHYROXINE. [Concomitant]
     Active Substance: LEVOTHYROXINE
  10. DELFLEX WITH DEXTROSE 2.5% LOW MAGNESIUM LOW CALCIUM [Suspect]
     Active Substance: CALCIUM CHLORIDE\DEXTROSE\MAGNESIUM CHLORIDE\SODIUM CHLORIDE\SODIUM LACTATE
     Indication: END STAGE RENAL DISEASE
     Route: 033
     Dates: start: 20150114
  11. LISINOPRIL. [Concomitant]
     Active Substance: LISINOPRIL
  12. LANTUS [Concomitant]
     Active Substance: INSULIN GLARGINE

REACTIONS (1)
  - Death [Fatal]

NARRATIVE: CASE EVENT DATE: 20160615
